FAERS Safety Report 7334150-7 (Version None)
Quarter: 2011Q1

REPORT INFORMATION
  Report Type: 
  Country: None (occurrence: None)
  Receive Date: 20110307
  Receipt Date: 20100827
  Transmission Date: 20110831
  Serious: Yes (Hospitalization, Other)
  Sender: FDA-Public Use
  Company Number: US-BAYER-201024610NA

PATIENT
  Sex: Female
  Weight: 109 kg

DRUGS (5)
  1. LEXAPRO [Concomitant]
     Indication: MOOD SWINGS
     Dosage: UNK
     Dates: start: 20070101
  2. METFORMIN [Concomitant]
     Indication: POLYCYSTIC OVARIES
     Dosage: UNK
     Dates: start: 20070101
  3. PRENATAL PLUS IRON [Concomitant]
     Indication: PRENATAL CARE
     Dosage: UNK
     Dates: start: 20090101
  4. YAZ [Suspect]
     Indication: PRODUCT USED FOR UNKNOWN INDICATION
     Route: 048
     Dates: start: 20080101, end: 20090101
  5. OMEPRAZOLE [Concomitant]
     Indication: DYSPEPSIA

REACTIONS (10)
  - SENSATION OF PRESSURE [None]
  - BILIARY COLIC [None]
  - BILIARY DYSKINESIA [None]
  - ABDOMINAL PAIN [None]
  - NAUSEA [None]
  - ABDOMINAL PAIN UPPER [None]
  - ABDOMINAL DISTENSION [None]
  - CHOLELITHIASIS [None]
  - ABDOMINAL PAIN LOWER [None]
  - GALLBLADDER CHOLESTEROLOSIS [None]
